FAERS Safety Report 6252773-3 (Version None)
Quarter: 2009Q2

REPORT INFORMATION
  Report Type: 
  Country: None (occurrence: None)
  Receive Date: 20090629
  Receipt Date: 20090619
  Transmission Date: 20091009
  Serious: Yes (Death)
  Sender: FDA-Public Use
  Company Number: 2009AL003909

PATIENT
  Sex: Female

DRUGS (1)
  1. DIGOXIN [Suspect]
     Indication: ATRIAL FIBRILLATION
     Dosage: 0.25MG, PO
     Route: 048
     Dates: start: 20070101, end: 20070623

REACTIONS (4)
  - ACUTE MYOCARDIAL INFARCTION [None]
  - ANXIETY [None]
  - ECONOMIC PROBLEM [None]
  - PAIN [None]
